FAERS Safety Report 4718704-X (Version None)
Quarter: 2005Q3

REPORT INFORMATION
  Report Type: 
  Country: None (occurrence: None)
  Receive Date: 20050719
  Receipt Date: 20050714
  Transmission Date: 20060218
  Serious: Yes (Hospitalization)
  Sender: FDA-Public Use
  Company Number: S05-USA-02675-01

PATIENT
  Age: 17 Year
  Sex: Female

DRUGS (12)
  1. LEXAPRO [Suspect]
     Indication: DEPRESSION
     Dosage: 50 MG QD PO
     Route: 048
     Dates: start: 20050101, end: 20050531
  2. LEXAPRO [Suspect]
     Indication: DEPRESSION
     Dosage: 10 MG QD PO
     Route: 048
     Dates: start: 20040625, end: 20040701
  3. LEXAPRO [Suspect]
     Indication: DEPRESSION
     Dosage: 20 MG QD PO
     Route: 048
     Dates: start: 20040702, end: 20040708
  4. LEXAPRO [Suspect]
     Indication: DEPRESSION
     Dosage: 30 MG QD PO
     Route: 048
     Dates: start: 20040709, end: 20040715
  5. LEXAPRO [Suspect]
     Indication: DEPRESSION
     Dosage: 40 MG QD PO
     Route: 048
     Dates: start: 20040716, end: 20040722
  6. LEXAPRO [Suspect]
     Indication: DEPRESSION
     Dosage: 50 MG QD PO
     Route: 048
     Dates: start: 20040723, end: 20041201
  7. LEXAPRO [Suspect]
     Indication: DEPRESSION
     Dosage: 30 MG QD PO
     Route: 048
     Dates: start: 20041201, end: 20050101
  8. ELAVIL [Suspect]
     Indication: DEPRESSION
     Dosage: 50 MG QD
     Dates: end: 20050531
  9. KLONOPIN [Suspect]
     Indication: DEPRESSION
     Dosage: 1 MG QD
     Dates: start: 20040625, end: 20050531
  10. RITALIN [Suspect]
     Indication: DEPRESSION
     Dosage: 30 MG QD
     Dates: start: 20050201, end: 20050601
  11. ABILIFY [Suspect]
     Indication: DEPRESSION
     Dates: start: 20050117, end: 20050531
  12. GEODON [Suspect]
     Indication: DEPRESSION
     Dosage: 40 MG QD PO
     Route: 048
     Dates: start: 20050430, end: 20050531

REACTIONS (11)
  - ABNORMAL BEHAVIOUR [None]
  - CONDITION AGGRAVATED [None]
  - DEPRESSION [None]
  - DRUG INEFFECTIVE [None]
  - HALLUCINATION [None]
  - INTENTIONAL MISUSE [None]
  - OVERDOSE [None]
  - POST-TRAUMATIC STRESS DISORDER [None]
  - SUICIDAL IDEATION [None]
  - SUICIDE ATTEMPT [None]
  - TREATMENT NONCOMPLIANCE [None]
